FAERS Safety Report 25827070 (Version 1)
Quarter: 2025Q3

REPORT INFORMATION
  Report Type: Report from Study
  Country: US (occurrence: US)
  Receive Date: 20250920
  Receipt Date: 20250920
  Transmission Date: 20251021
  Serious: Yes (Other)
  Sender: UCB
  Company Number: US-UCBSA-2025057571

PATIENT
  Age: 24 Year
  Sex: Female

DRUGS (1)
  1. BIMEKIZUMAB [Suspect]
     Active Substance: BIMEKIZUMAB
     Indication: Hidradenitis
     Dosage: 320 MILLIGRAM, EV 2 WEEKS(QOW)
     Route: 058
     Dates: start: 20250807, end: 20250807

REACTIONS (2)
  - Pharyngeal swelling [Recovered/Resolved]
  - Nasopharyngitis [Recovered/Resolved]

NARRATIVE: CASE EVENT DATE: 20250814
